FAERS Safety Report 6302970-3 (Version None)
Quarter: 2009Q3

REPORT INFORMATION
  Report Type: 
  Country: None (occurrence: None)
  Receive Date: 20090810
  Receipt Date: 20090803
  Transmission Date: 20100115
  Serious: Yes (Life-Threatening)
  Sender: FDA-Public Use
  Company Number: JP-AVENTIS-200911706JP

PATIENT
  Age: 76 Year
  Sex: Female
  Weight: 40 kg

DRUGS (4)
  1. ALLEGRA [Suspect]
     Route: 048
     Dates: start: 20090501, end: 20090608
  2. ALL OTHER THERAPEUTIC PRODUCTS [Concomitant]
     Indication: IRON OVERLOAD
     Route: 048
     Dates: start: 20080802, end: 20090608
  3. ACINON [Concomitant]
     Route: 048
     Dates: start: 20060221, end: 20090608
  4. ALFAROL [Concomitant]
     Indication: OSTEOPOROSIS
     Route: 048
     Dates: start: 20090519, end: 20090608

REACTIONS (2)
  - AGRANULOCYTOSIS [None]
  - PYREXIA [None]
